FAERS Safety Report 5783592-X (Version None)
Quarter: 2008Q2

REPORT INFORMATION
  Report Type: 
  Country: None (occurrence: None)
  Receive Date: 20080605
  Receipt Date: 20080320
  Transmission Date: 20081010
  Serious: No
  Sender: FDA-Public Use
  Company Number: A0716544A

PATIENT
  Age: 34 Year
  Sex: Female

DRUGS (3)
  1. ALLI [Suspect]
     Dates: start: 20080301, end: 20080305
  2. ALLERGY MEDICINE [Concomitant]
  3. CELEBREX [Concomitant]

REACTIONS (2)
  - ABDOMINAL PAIN LOWER [None]
  - CONSTIPATION [None]
